FAERS Safety Report 13178598 (Version 5)
Quarter: 2017Q1

REPORT INFORMATION
  Report Type: Report from Study
  Country: US (occurrence: US)
  Receive Date: 20170202
  Receipt Date: 20170330
  Transmission Date: 20170428
  Serious: Yes (Other)
  Sender: FDA-Public Use
  Company Number: US-BRISTOL-MYERS SQUIBB COMPANY-BMS-2016-109561

PATIENT
  Age: 74 Year
  Sex: Male

DRUGS (2)
  1. NIVOLUMAB [Suspect]
     Active Substance: NIVOLUMAB
     Indication: RENAL CANCER
     Dosage: UNK, Q2WK
     Route: 042
     Dates: start: 20161010
  2. IMODIUM [Concomitant]
     Active Substance: LOPERAMIDE HYDROCHLORIDE
     Indication: PRODUCT USED FOR UNKNOWN INDICATION
     Route: 065

REACTIONS (23)
  - Surgery [Unknown]
  - Blood glucose fluctuation [Unknown]
  - Asthenia [Unknown]
  - Nasal congestion [Unknown]
  - Musculoskeletal stiffness [Unknown]
  - Gait disturbance [Unknown]
  - Hypersomnia [Unknown]
  - Decreased appetite [Unknown]
  - Blood glucose decreased [Unknown]
  - Pruritus [Unknown]
  - Cough [Not Recovered/Not Resolved]
  - Muscular weakness [Unknown]
  - Discomfort [Unknown]
  - Rash [Recovered/Resolved]
  - Feeling cold [Unknown]
  - Pain in extremity [Recovered/Resolved]
  - Dysstasia [Unknown]
  - Respiratory tract congestion [Unknown]
  - Granuloma annulare [Recovering/Resolving]
  - Diarrhoea [Recovered/Resolved]
  - Platelet count increased [Unknown]
  - Fatigue [Unknown]
  - Dysphonia [Unknown]

NARRATIVE: CASE EVENT DATE: 20170111
